FAERS Safety Report 7137569-2 (Version None)
Quarter: 2010Q4

REPORT INFORMATION
  Report Type: 
  Country: None (occurrence: None)
  Receive Date: 20101103
  Receipt Date: 20100513
  Transmission Date: 20110411
  Serious: Yes (Other)
  Sender: FDA-Public Use
  Company Number: 2010S1000281

PATIENT
  Sex: Female
  Weight: 65.8 kg

DRUGS (4)
  1. CUBICIN [Suspect]
     Indication: OSTEOMYELITIS
     Dosage: 3.80 MG/KG;Q24H; IV
     Route: 042
     Dates: start: 20070426, end: 20070516
  2. CIPROFLOXACIN [Concomitant]
  3. PRIMAXIN [Concomitant]
  4. MORPHINE [Concomitant]

REACTIONS (1)
  - EOSINOPHILIA [None]
